FAERS Safety Report 20059535 (Version 1)
Quarter: 2021Q4

REPORT INFORMATION
  Report Type: Spontaneous
  Country: US (occurrence: None)
  Receive Date: 20211111
  Receipt Date: 20211111
  Transmission Date: 20220303
  Serious: No
  Sender: FDA-Public Use
  Company Number: 2021A786020

PATIENT
  Age: 139 Month
  Sex: Male
  Weight: 56.1 kg

DRUGS (2)
  1. KOSELUGO [Suspect]
     Active Substance: SELUMETINIB
     Indication: Optic neuropathy
     Route: 048
     Dates: start: 202007
  2. KOSELUGO [Suspect]
     Active Substance: SELUMETINIB
     Indication: Optic neuropathy
     Route: 048
     Dates: start: 202007

REACTIONS (2)
  - Paronychia [Not Recovered/Not Resolved]
  - Off label use [Recovered/Resolved]

NARRATIVE: CASE EVENT DATE: 20210301
